FAERS Safety Report 11329937 (Version 1)
Quarter: 2015Q3

REPORT INFORMATION
  Report Type: Spontaneous
  Country: US (occurrence: None)
  Receive Date: 20150730
  Receipt Date: 20150730
  Transmission Date: 20151125
  Serious: No
  Sender: FDA-Public Use
  Company Number: None

PATIENT
  Age: 77 Year
  Sex: Male
  Weight: 84.5 kg

DRUGS (1)
  1. RIVAROXABAN [Suspect]
     Active Substance: RIVAROXABAN
     Indication: DEEP VEIN THROMBOSIS
     Dosage: 20 MG, PM, PO
     Route: 048
     Dates: start: 20141015, end: 20141106

REACTIONS (3)
  - Headache [None]
  - Tachycardia [None]
  - Lacrimation increased [None]

NARRATIVE: CASE EVENT DATE: 20141104
